FAERS Safety Report 16199211 (Version 2)
Quarter: 2020Q3

REPORT INFORMATION
  Report Type: Spontaneous
  Country: US (occurrence: US)
  Receive Date: 20190415
  Receipt Date: 20200824
  Transmission Date: 20201102
  Serious: Yes (Death, Hospitalization, Other)
  Sender: FDA-Public Use
  Company Number: US-JNJFOC-20190419013

PATIENT
  Age: 31 Year
  Sex: Female

DRUGS (1)
  1. XARELTO [Suspect]
     Active Substance: RIVAROXABAN
     Indication: ANTICOAGULANT THERAPY
     Route: 048
     Dates: start: 2012

REACTIONS (4)
  - Post procedural haemorrhage [Unknown]
  - Hypertensive heart disease [Fatal]
  - Cerebral haemorrhage [Fatal]
  - Aneurysm [Unknown]

NARRATIVE: CASE EVENT DATE: 2013
